FAERS Safety Report 18168643 (Version 1)
Quarter: 2020Q3

REPORT INFORMATION
  Report Type: Spontaneous
  Country: US (occurrence: US)
  Receive Date: 20200819
  Receipt Date: 20200819
  Transmission Date: 20201103
  Serious: No
  Sender: FDA-Public Use
  Company Number: US-SA-2020SA211039

PATIENT

DRUGS (15)
  1. ZOLPIDEM TARTRATE. [Concomitant]
     Active Substance: ZOLPIDEM TARTRATE
  2. ERYTHROCIN STEARATE [Concomitant]
     Active Substance: ERYTHROMYCIN STEARATE
  3. MIRTAZAP [Concomitant]
  4. AUBAGIO [Suspect]
     Active Substance: TERIFLUNOMIDE
     Indication: PRODUCT USED FOR UNKNOWN INDICATION
     Dosage: 1 DF, QD
     Route: 048
     Dates: start: 20180412
  5. ATENOLOL. [Concomitant]
     Active Substance: ATENOLOL
  6. GABAPENTIN. [Concomitant]
     Active Substance: GABAPENTIN
  7. LANTUS [Concomitant]
     Active Substance: INSULIN GLARGINE
  8. LORAZEPAM. [Concomitant]
     Active Substance: LORAZEPAM
  9. ASPIRIN [ACETYLSALICYLIC ACID] [Concomitant]
     Active Substance: ASPIRIN
  10. VENTOLIN HFA [Concomitant]
     Active Substance: ALBUTEROL SULFATE
     Dosage: 108
  11. GABAPENTIN. [Concomitant]
     Active Substance: GABAPENTIN
  12. DRONABINOL. [Concomitant]
     Active Substance: DRONABINOL
  13. VITAMIN D;VITAMIN E [Concomitant]
  14. METFORMIN HCL [Concomitant]
     Active Substance: METFORMIN HYDROCHLORIDE
  15. LEVORPHANOL [Concomitant]
     Active Substance: LEVORPHANOL

REACTIONS (1)
  - Illness [Not Recovered/Not Resolved]
